FAERS Safety Report 19216953 (Version 1)
Quarter: 2021Q2

REPORT INFORMATION
  Report Type: Spontaneous
  Country: US (occurrence: US)
  Receive Date: 20210505
  Receipt Date: 20210505
  Transmission Date: 20210717
  Serious: Yes (Life-Threatening)
  Sender: FDA-Public Use
  Company Number: None

PATIENT
  Age: 52 Year
  Sex: Female
  Weight: 54.9 kg

DRUGS (2)
  1. BAMLANIVIMAB 700MG / ETESEVIMAB 1400MG IN 100ML NS BAG [Suspect]
     Active Substance: BAMLANIVIMAB\ETESEVIMAB
     Indication: COVID-19
     Dosage: ?          OTHER FREQUENCY:ONCE;?
     Route: 041
     Dates: start: 20210430, end: 20210430
  2. BAMLANIVIMAB AND ETESEVIMAB IN 100ML NS [Suspect]
     Active Substance: BAMLANIVIMAB\ETESEVIMAB
     Indication: COVID-19
     Dosage: ?          OTHER FREQUENCY:ONCE;?
     Route: 041
     Dates: start: 20210430, end: 20210430

REACTIONS (3)
  - Lip swelling [None]
  - Periorbital swelling [None]
  - Urticaria [None]

NARRATIVE: CASE EVENT DATE: 20210501
